FAERS Safety Report 13786182 (Version 1)
Quarter: 2017Q3

REPORT INFORMATION
  Report Type: Spontaneous
  Country: US (occurrence: US)
  Receive Date: 20170725
  Receipt Date: 20170725
  Transmission Date: 20171127
  Serious: Yes (Hospitalization)
  Sender: FDA-Public Use
  Company Number: None

PATIENT
  Age: 66 Year
  Sex: Female
  Weight: 72.6 kg

DRUGS (14)
  1. ZEPATIER [Suspect]
     Active Substance: ELBASVIR\GRAZOPREVIR
     Indication: HEPATITIS C VIRUS TEST
     Dosage: DOSE - 50-100MG?
     Route: 048
     Dates: start: 20170119, end: 20170413
  2. ELAVIL [Concomitant]
     Active Substance: AMITRIPTYLINE HYDROCHLORIDE
  3. ANTIVERT [Concomitant]
     Active Substance: MECLIZINE HYDROCHLORIDE
  4. NORVASC [Concomitant]
     Active Substance: AMLODIPINE BESYLATE
  5. ASPIRIN. [Concomitant]
     Active Substance: ASPIRIN
  6. NOVOLOG [Concomitant]
     Active Substance: INSULIN ASPART
  7. LIPITOR [Concomitant]
     Active Substance: ATORVASTATIN CALCIUM
  8. LASIX [Concomitant]
     Active Substance: FUROSEMIDE
  9. PLAVIX [Concomitant]
     Active Substance: CLOPIDOGREL BISULFATE
  10. NEURONTIN [Concomitant]
     Active Substance: GABAPENTIN
  11. INSULIN NPH (HUMULIN N, NOVOLIN N) [Concomitant]
  12. BUMETANIDE (BUMEX) [Concomitant]
  13. TRAMADOL (ULTRAM) [Concomitant]
  14. STRIP SIMETHICONE (MYLICON) [Concomitant]

REACTIONS (6)
  - Hypoglycaemia [None]
  - Acute kidney injury [None]
  - Hyperglycaemia [None]
  - Gastritis [None]
  - Vascular rupture [None]
  - Blindness [None]

NARRATIVE: CASE EVENT DATE: 20170131
